FAERS Safety Report 9734663 (Version 2)
Quarter: 2014Q1

REPORT INFORMATION
  Report Type: Spontaneous
  Country: JP (occurrence: JP)
  Receive Date: 20131206
  Receipt Date: 20140102
  Transmission Date: 20141002
  Serious: Yes (Other)
  Sender: FDA-Public Use
  Company Number: JP-AMGEN-JPNSP2013085081

PATIENT
  Sex: 0

DRUGS (1)
  1. VECTIBIX [Suspect]
     Indication: COLON CANCER
     Dosage: UNK
     Route: 041
     Dates: start: 201307

REACTIONS (2)
  - Purpura [Not Recovered/Not Resolved]
  - Dermatitis acneiform [Not Recovered/Not Resolved]
